FAERS Safety Report 11566600 (Version 2)
Quarter: 2015Q4

REPORT INFORMATION
  Report Type: Spontaneous
  Country: US (occurrence: US)
  Receive Date: 20150916
  Receipt Date: 20151027
  Transmission Date: 20160304
  Serious: No
  Sender: FDA-Public Use
  Company Number: US-ELI_LILLY_AND_COMPANY-US200906003355

PATIENT
  Age: 36 Year
  Sex: Female

DRUGS (2)
  1. INTERFERON [Concomitant]
     Active Substance: INTERFERON
  2. FORTEO [Suspect]
     Active Substance: TERIPARATIDE
     Dates: start: 20090528

REACTIONS (3)
  - Device use error [Unknown]
  - Accidental overdose [Unknown]
  - Abdominal pain upper [Unknown]

NARRATIVE: CASE EVENT DATE: 2009
